FAERS Safety Report 17570752 (Version 2)
Quarter: 2020Q1

REPORT INFORMATION
  Report Type: Spontaneous
  Country: RO (occurrence: RO)
  Receive Date: 20200323
  Receipt Date: 20200326
  Transmission Date: 20200409
  Serious: Yes (Other)
  Sender: FDA-Public Use
  Company Number: RO-MYLANLABS-2020M1029319

PATIENT
  Age: 33 Year
  Sex: Male

DRUGS (10)
  1. METHOTREXATE. [Suspect]
     Active Substance: METHOTREXATE
     Indication: ANKYLOSING SPONDYLITIS
     Dosage: UNK
     Route: 065
  2. ENBREL [Suspect]
     Active Substance: ETANERCEPT
     Indication: ANKYLOSING SPONDYLITIS
     Dosage: 50 MILLIGRAM, 1 AMPOULE PER WEEK
     Route: 065
  3. SOLU-MEDROL [Suspect]
     Active Substance: METHYLPREDNISOLONE SODIUM SUCCINATE
     Indication: ANKYLOSING SPONDYLITIS
     Dosage: UNK
     Route: 065
  4. CIMZIA [Suspect]
     Active Substance: CERTOLIZUMAB PEGOL
     Indication: ANKYLOSING SPONDYLITIS
     Dosage: 200 MILLIGRAM, 1 AMPOULE EVERY 2 WEEKS
     Route: 065
  5. MELOXICAM. [Suspect]
     Active Substance: MELOXICAM
     Indication: ANKYLOSING SPONDYLITIS
     Dosage: UNK
     Route: 065
  6. DICLOFENAC [Suspect]
     Active Substance: DICLOFENAC
     Indication: ANKYLOSING SPONDYLITIS
     Dosage: UNK
     Route: 065
  7. SULFASALAZINE. [Suspect]
     Active Substance: SULFASALAZINE
     Indication: ANKYLOSING SPONDYLITIS
     Dosage: UNK
     Route: 065
  8. REMSIMA [Suspect]
     Active Substance: INFLIXIMAB
     Indication: ANKYLOSING SPONDYLITIS
     Dosage: UNK
     Route: 065
  9. BUDENOFALK [Suspect]
     Active Substance: BUDESONIDE
     Indication: ANKYLOSING SPONDYLITIS
     Dosage: UNK
     Route: 065
  10. HUMIRA [Suspect]
     Active Substance: ADALIMUMAB
     Indication: ANKYLOSING SPONDYLITIS
     Dosage: 40 MILLIGRAM, 1 AMPOULE EVERY 2 WEEKS
     Route: 065

REACTIONS (8)
  - Drug ineffective [Unknown]
  - Chills [Unknown]
  - Dyspnoea [Unknown]
  - Arrhythmia [Unknown]
  - Vomiting [Unknown]
  - Diarrhoea [Unknown]
  - Product use in unapproved indication [Unknown]
  - Headache [Unknown]

NARRATIVE: CASE EVENT DATE: 200605
